FAERS Safety Report 9946550 (Version 1)
Quarter: 2014Q1

REPORT INFORMATION
  Report Type: Report from Study
  Country: US (occurrence: US)
  Receive Date: 20140303
  Receipt Date: 20140303
  Transmission Date: 20141002
  Serious: No
  Sender: FDA-Public Use
  Company Number: US-ABBVIE-13P-163-1062898-00

PATIENT
  Age: 41 Year
  Sex: Female

DRUGS (7)
  1. HUMIRA [Suspect]
     Indication: CROHN^S DISEASE
     Dosage: LOADING DOSE
     Dates: start: 20130227, end: 20130227
  2. HUMIRA [Suspect]
  3. SOTOLOL [Concomitant]
     Indication: ARRHYTHMOGENIC RIGHT VENTRICULAR DYSPLASIA
  4. K-DUR [Concomitant]
     Indication: MINERAL SUPPLEMENTATION
     Dosage: 0
  5. PREVACID [Concomitant]
     Indication: DYSPEPSIA
     Dosage: 1 A DAY AS NEEDED
  6. COLOZAL [Concomitant]
     Indication: CROHN^S DISEASE
     Dosage: 750 MG (?) 9 A DAY
  7. ROWASA [Concomitant]
     Indication: CROHN^S DISEASE

REACTIONS (3)
  - Injection site urticaria [Unknown]
  - Injection site rash [Unknown]
  - Headache [Not Recovered/Not Resolved]
